FAERS Safety Report 8838405 (Version 2)
Quarter: 2012Q4

REPORT INFORMATION
  Report Type: 
  Country: LU (occurrence: LU)
  Receive Date: 20121012
  Receipt Date: 20121026
  Transmission Date: 20130627
  Serious: Yes (Other)
  Sender: FDA-Public Use
  Company Number: LU-ASTRAZENECA-2012SE76393

PATIENT
  Age: 54 Year
  Sex: Female
  Weight: 63 kg

DRUGS (5)
  1. BRILIQUE [Suspect]
     Route: 048
     Dates: start: 201207
  2. LIPITOR [Interacting]
     Route: 048
     Dates: start: 201207, end: 20121010
  3. EMCONCOR [Concomitant]
     Indication: ACUTE MYOCARDIAL INFARCTION
     Route: 048
     Dates: start: 201207
  4. ASPIRIN [Concomitant]
     Dates: start: 201207
  5. COZAAR [Concomitant]
     Indication: HYPERTENSION
     Route: 048
     Dates: start: 201208

REACTIONS (3)
  - Drug interaction [Recovering/Resolving]
  - Nephrotic syndrome [Recovering/Resolving]
  - Hepatic function abnormal [Recovering/Resolving]
